FAERS Safety Report 9366333 (Version 2)
Quarter: 2013Q3

REPORT INFORMATION
  Report Type: Spontaneous
  Country: US (occurrence: US)
  Receive Date: 20130625
  Receipt Date: 20130711
  Transmission Date: 20140515
  Serious: Yes (Other)
  Sender: FDA-Public Use
  Company Number: US-JNJFOC-20130609220

PATIENT
  Sex: Female

DRUGS (5)
  1. DOXORUBICIN HYDROCHLORIDE [Suspect]
     Indication: BREAST CANCER
     Dosage: 15 MINUTES EVERY 21 DAYS
     Route: 042
  2. DOCETAXEL [Suspect]
     Indication: BREAST CANCER
     Dosage: OVER 60 MINUTES EVERY 21 DAYS
     Route: 042
  3. INVESTIGATIONAL PRODUCT [Suspect]
     Indication: BREAST CANCER
     Route: 042
  4. DEXAMETHASONE [Concomitant]
     Indication: PREMEDICATION
     Dosage: TOTAL OF SIX DOSES
     Route: 048
  5. NEULASTA [Concomitant]
     Indication: PROPHYLAXIS
     Route: 058

REACTIONS (19)
  - Pyrexia [Unknown]
  - Neutropenia [Unknown]
  - Anaemia [Unknown]
  - Fatigue [Unknown]
  - Infection [Unknown]
  - Myalgia [Unknown]
  - Peripheral sensory neuropathy [Unknown]
  - Thrombocytopenia [Unknown]
  - Neutropenic infection [Unknown]
  - Alanine aminotransferase increased [Unknown]
  - Rash [Unknown]
  - Constipation [Unknown]
  - Diarrhoea [Unknown]
  - Dyspepsia [Unknown]
  - Hot flush [Unknown]
  - Nausea [Unknown]
  - Skin exfoliation [Unknown]
  - Stomatitis [Unknown]
  - Vomiting [Unknown]
